FAERS Safety Report 17271284 (Version 1)
Quarter: 2020Q1

REPORT INFORMATION
  Report Type: Spontaneous
  Country: US (occurrence: US)
  Receive Date: 20200115
  Receipt Date: 20200115
  Transmission Date: 20200409
  Serious: Yes (Other)
  Sender: FDA-Public Use
  Company Number: US-PFIZER INC-2020013001

PATIENT
  Age: 33 Year
  Sex: Male
  Weight: 85.71 kg

DRUGS (1)
  1. CHANTIX [Suspect]
     Active Substance: VARENICLINE TARTRATE
     Dosage: UNK
     Dates: start: 2009

REACTIONS (5)
  - Ear discomfort [Unknown]
  - Product use issue [Unknown]
  - Pharyngeal mass [Unknown]
  - Schizophrenia [Unknown]
  - Off label use [Unknown]

NARRATIVE: CASE EVENT DATE: 2019
